FAERS Safety Report 4521677-6 (Version None)
Quarter: 2004Q4

REPORT INFORMATION
  Report Type: 
  Country: None (occurrence: None)
  Receive Date: 20041206
  Receipt Date: 20041119
  Transmission Date: 20050328
  Serious: Yes (Hospitalization)
  Sender: FDA-Public Use
  Company Number: 2004SE06525

PATIENT
  Age: 38 Year
  Sex: Female

DRUGS (3)
  1. ATACAND [Suspect]
     Indication: HYPERTENSION
     Dosage: 8 MG DAILY PO
     Route: 048
     Dates: start: 20040905, end: 20040918
  2. ATACAND [Suspect]
     Indication: HYPERTENSION
     Dosage: 8 MG BID PO
     Route: 048
     Dates: start: 20040919, end: 20041002
  3. PRIMASPAN [Concomitant]

REACTIONS (5)
  - ANGIONEUROTIC OEDEMA [None]
  - DIPLOPIA [None]
  - HEADACHE [None]
  - SENSATION OF FOREIGN BODY [None]
  - STRABISMUS [None]
